FAERS Safety Report 6992363-8 (Version None)
Quarter: 2010Q3

REPORT INFORMATION
  Report Type: 
  Country: None (occurrence: None)
  Receive Date: 20100915
  Receipt Date: 20100906
  Transmission Date: 20110219
  Serious: Yes (Hospitalization)
  Sender: FDA-Public Use
  Company Number: IPC201009-000254

PATIENT
  Age: 60 Year
  Sex: Female
  Weight: 52 kg

DRUGS (3)
  1. FUROSEMIDE [Suspect]
     Dosage: 40-60 MG DAILY,  1000 MG/DAY, OVER THE PRECEDING 5 YEARS
  2. ORLISTAT [Suspect]
     Dosage: 120-240 MG /DAY, OVER PREVIOUS 3 YEARS
  3. ETORICOXIB [Suspect]
     Indication: ARTHRALGIA
     Dosage: 90 MG/DAY

REACTIONS (8)
  - DRUG ABUSE [None]
  - GAIT DISTURBANCE [None]
  - MONARTHRITIS [None]
  - NEPHROCALCINOSIS [None]
  - OVERDOSE [None]
  - RENAL INJURY [None]
  - RENAL TUBULAR NECROSIS [None]
  - TUBULOINTERSTITIAL NEPHRITIS [None]
